FAERS Safety Report 9867411 (Version 1)
Quarter: 2014Q1

REPORT INFORMATION
  Report Type: Spontaneous
  Country: ES (occurrence: ES)
  Receive Date: 20140204
  Receipt Date: 20140204
  Transmission Date: 20141002
  Serious: Yes (Other)
  Sender: FDA-Public Use
  Company Number: ES-B.I. PHARMACEUTICALS,INC./RIDGEFIELD-2014-BI-04637ES

PATIENT
  Age: 87 Year
  Sex: Female

DRUGS (1)
  1. PRADAXA [Suspect]
     Indication: CARDIAC FAILURE ACUTE
     Dosage: 220 MG
     Route: 048
     Dates: end: 20130626

REACTIONS (2)
  - Anaemia [Recovered/Resolved]
  - Renal failure acute [Recovered/Resolved]
